FAERS Safety Report 13087345 (Version 1)
Quarter: 2017Q1

REPORT INFORMATION
  Report Type: Spontaneous
  Country: GB (occurrence: GB)
  Receive Date: 20170105
  Receipt Date: 20170105
  Transmission Date: 20170428
  Serious: Yes (Hospitalization)
  Sender: FDA-Public Use
  Company Number: GB-ASTRAZENECA-2017SE00041

PATIENT
  Age: 78 Year

DRUGS (12)
  1. DILTIAZEM. [Concomitant]
     Active Substance: DILTIAZEM
  2. PHENYTOIN. [Concomitant]
     Active Substance: PHENYTOIN
  3. ASPIRIN. [Concomitant]
     Active Substance: ASPIRIN
  4. CARBAMAZEPINE. [Concomitant]
     Active Substance: CARBAMAZEPINE
     Indication: EPILEPSY
     Dates: start: 1996
  5. FOLIC ACID. [Concomitant]
     Active Substance: FOLIC ACID
  6. PHENOBARBITAL. [Concomitant]
     Active Substance: PHENOBARBITAL
  7. SALBUTAMOL [Concomitant]
     Active Substance: ALBUTEROL
     Dosage: 200.0UG UNKNOWN
  8. PERINDOPRIL [Suspect]
     Active Substance: PERINDOPRIL
     Route: 065
  9. SIRDUPLA [Concomitant]
     Dosage: 25MICROGRAMS/DOSE / 250MICROGRAMS/DOSE; 2 DF TWO TIMES A DAY
     Route: 055
  10. OMEPRAZOLE. [Suspect]
     Active Substance: OMEPRAZOLE
     Route: 048
  11. ISOSORBIDE MONONITRATE. [Concomitant]
     Active Substance: ISOSORBIDE MONONITRATE
  12. SIMVASTATIN. [Concomitant]
     Active Substance: SIMVASTATIN

REACTIONS (3)
  - Fall [Unknown]
  - Hyponatraemia [Recovering/Resolving]
  - Confusional state [Unknown]
